FAERS Safety Report 10177053 (Version 1)
Quarter: 2014Q2

REPORT INFORMATION
  Report Type: Spontaneous
  Country: US (occurrence: None)
  Receive Date: 20140515
  Receipt Date: 20140515
  Transmission Date: 20141212
  Serious: Yes (Hospitalization)
  Sender: FDA-Public Use
  Company Number: None

PATIENT
  Age: 69 Year
  Sex: Male
  Weight: 83.01 kg

DRUGS (3)
  1. ABIRATERONE [Suspect]
     Indication: PROSTATIC ADENOMA
     Route: 048
     Dates: start: 20130619, end: 20140425
  2. PREDNISONE [Suspect]
     Route: 048
  3. DASATINIB [Suspect]
     Route: 048

REACTIONS (4)
  - Peripheral swelling [None]
  - Abdominal distension [None]
  - Pleural effusion [None]
  - Fluid retention [None]
